FAERS Safety Report 14211443 (Version 9)
Quarter: 2018Q4

REPORT INFORMATION
  Report Type: Report from Study
  Country: RO (occurrence: RO)
  Receive Date: 20171121
  Receipt Date: 20181126
  Transmission Date: 20190204
  Serious: Yes (Hospitalization)
  Sender: FDA-Public Use
  Company Number: RO-SA-2017SA165450

PATIENT
  Age: 45 Year
  Sex: Female
  Weight: 62 kg

DRUGS (12)
  1. PREDNISONE. [Suspect]
     Active Substance: PREDNISONE
     Indication: ASTHMA
     Dosage: 5 MG,QD
     Route: 048
     Dates: start: 20170220, end: 20170904
  2. PREDNISONE. [Suspect]
     Active Substance: PREDNISONE
     Dosage: 10 MG, QD
     Route: 048
     Dates: start: 20161005
  3. PREDNISONE. [Suspect]
     Active Substance: PREDNISONE
     Dosage: 20 MG, QD
     Route: 048
     Dates: start: 20161013, end: 20161020
  4. OMEPRAZOLE. [Concomitant]
     Active Substance: OMEPRAZOLE
     Indication: PROPHYLAXIS
     Dosage: 20 MG,QD
     Route: 048
     Dates: start: 20160202
  5. BECLOMETASONE DIPROPIONATE/FORMOTEROL FUMARATE [Suspect]
     Active Substance: BECLOMETHASONE DIPROPIONATE\FORMOTEROL FUMARATE
     Indication: ASTHMA
     Dosage: 100 UG,UNK
     Route: 055
     Dates: start: 20160317, end: 20170219
  6. DUPILUMAB [Suspect]
     Active Substance: DUPILUMAB
     Indication: ASTHMA
     Dosage: 300 MG,1X
     Route: 058
     Dates: start: 20170220, end: 20170220
  7. DUPILUMAB [Suspect]
     Active Substance: DUPILUMAB
     Dosage: 300 MG,QOW
     Route: 058
     Dates: start: 20170306, end: 20170810
  8. PREDNISONE. [Suspect]
     Active Substance: PREDNISONE
     Dosage: 10 MG, QD
     Route: 048
     Dates: start: 20160705
  9. PREDNISONE. [Suspect]
     Active Substance: PREDNISONE
     Dosage: 7.5 MG, QD
     Route: 048
     Dates: start: 20161129
  10. SALBUTAMOL [Suspect]
     Active Substance: ALBUTEROL
     Indication: ASTHMA
     Dosage: UNK UNK,QD
     Route: 055
     Dates: start: 20170220
  11. BECLOMETASONE DIPROPIONATE/FORMOTEROL FUMARATE [Suspect]
     Active Substance: BECLOMETHASONE DIPROPIONATE\FORMOTEROL FUMARATE
     Dosage: 100 UG,UNK
     Route: 055
     Dates: start: 20170220
  12. PREDNISONE. [Suspect]
     Active Substance: PREDNISONE
     Dosage: 5.0 MG, QD
     Route: 048
     Dates: start: 20161228

REACTIONS (1)
  - Eosinophilic granulomatosis with polyangiitis [Recovering/Resolving]

NARRATIVE: CASE EVENT DATE: 20170817
